FAERS Safety Report 4748197-8 (Version None)
Quarter: 2005Q3

REPORT INFORMATION
  Report Type: 
  Country: None (occurrence: None)
  Receive Date: 20050818
  Receipt Date: 20050808
  Transmission Date: 20060218
  Serious: Yes (Hospitalization, Other)
  Sender: FDA-Public Use
  Company Number: DE-JNJFOC-20050802485

PATIENT
  Age: 12 Year
  Sex: Female

DRUGS (2)
  1. RISPERDAL [Suspect]
     Route: 048
  2. RISPERDAL [Suspect]
     Indication: AGGRESSION
     Route: 048

REACTIONS (2)
  - CEREBRAL ISCHAEMIA [None]
  - HEMIPARESIS [None]
